FAERS Safety Report 8523928-X (Version None)
Quarter: 2012Q3

REPORT INFORMATION
  Report Type: 
  Country: None (occurrence: None)
  Receive Date: 20120720
  Receipt Date: 20120710
  Transmission Date: 20120928
  Serious: Yes (Other)
  Sender: FDA-Public Use
  Company Number: FR-BRISTOL-MYERS SQUIBB COMPANY-16596371

PATIENT
  Age: 49 Year
  Sex: Male
  Weight: 80 kg

DRUGS (3)
  1. ABACAVIR SULFATE/LAMIVUDINE [Suspect]
  2. METFORMIN HCL [Interacting]
  3. REYATAZ [Interacting]
     Indication: HIV INFECTION
     Dosage: DOSE INCREASED:600 MG X 2 DAILY
     Route: 048
     Dates: start: 20081127

REACTIONS (2)
  - DRUG LEVEL DECREASED [None]
  - DRUG INTERACTION [None]
